FAERS Safety Report 6287620-7 (Version None)
Quarter: 2009Q3

REPORT INFORMATION
  Report Type: 
  Country: None (occurrence: None)
  Receive Date: 20090727
  Receipt Date: 20090727
  Transmission Date: 20100115
  Serious: Yes (Other)
  Sender: FDA-Public Use
  Company Number: None

PATIENT

DRUGS (1)
  1. SIMVASTATIN [Suspect]
     Indication: BLOOD CHOLESTEROL
     Dosage: 1-40 MG TAB NIGHTLY
     Dates: start: 19990101, end: 20080101

REACTIONS (4)
  - ABDOMINAL DISCOMFORT [None]
  - ALOPECIA [None]
  - MYALGIA [None]
  - PAIN [None]
